FAERS Safety Report 23033146 (Version 1)
Quarter: 2023Q4

REPORT INFORMATION
  Report Type: Spontaneous
  Country: US (occurrence: None)
  Receive Date: 20231004
  Receipt Date: 20231004
  Transmission Date: 20240109
  Serious: No
  Sender: FDA-Public Use
  Company Number: None

PATIENT
  Age: 67 Year
  Sex: Male

DRUGS (2)
  1. DESONIDE [Suspect]
     Active Substance: DESONIDE
     Indication: Eczema
     Dates: start: 20230201, end: 20230803
  2. TRIAMCINOLONE [Suspect]
     Active Substance: TRIAMCINOLONE

REACTIONS (5)
  - Erythema [None]
  - Scrotal erythema [None]
  - Nerve injury [None]
  - Skin atrophy [None]
  - Skin burning sensation [None]

NARRATIVE: CASE EVENT DATE: 20230701
